FAERS Safety Report 14664138 (Version 1)
Quarter: 2018Q1

REPORT INFORMATION
  Report Type: Spontaneous
  Country: US (occurrence: US)
  Receive Date: 20180321
  Receipt Date: 20180321
  Transmission Date: 20180509
  Serious: Yes (Hospitalization)
  Sender: FDA-Public Use
  Company Number: US-CELGENEUS-USA-20180306136

PATIENT
  Age: 78 Year
  Sex: Male

DRUGS (1)
  1. IDHIFA [Suspect]
     Active Substance: ENASIDENIB MESYLATE
     Indication: ACUTE MYELOID LEUKAEMIA
     Dosage: 100 MILLIGRAM
     Route: 048
     Dates: start: 20170817

REACTIONS (4)
  - Hip fracture [Unknown]
  - Cerebral haemorrhage [Unknown]
  - Fall [Unknown]
  - Craniocerebral injury [Unknown]

NARRATIVE: CASE EVENT DATE: 201803
